FAERS Safety Report 24383544 (Version 4)
Quarter: 2025Q3

REPORT INFORMATION
  Report Type: Spontaneous
  Country: CA (occurrence: CA)
  Receive Date: 20241001
  Receipt Date: 20250925
  Transmission Date: 20251021
  Serious: Yes (Life-Threatening, Other)
  Sender: CELLTRION
  Company Number: CA-PFIZER INC-PV202400126127

PATIENT

DRUGS (4)
  1. INFLECTRA [Suspect]
     Active Substance: INFLIXIMAB-DYYB
     Indication: Crohn^s disease
     Route: 042
  2. INFLECTRA [Suspect]
     Active Substance: INFLIXIMAB-DYYB
     Dates: start: 20220929
  3. INFLECTRA [Suspect]
     Active Substance: INFLIXIMAB-DYYB
     Dates: start: 20240923
  4. INFLECTRA [Suspect]
     Active Substance: INFLIXIMAB-DYYB

REACTIONS (8)
  - Myocardial infarction [Unknown]
  - Cardio-respiratory arrest [Unknown]
  - Cholecystitis acute [Unknown]
  - Small intestinal stenosis [Unknown]
  - Infection [Unknown]
  - Drain site complication [Unknown]
  - Drug level decreased [Unknown]
  - Drug specific antibody present [Unknown]

NARRATIVE: CASE EVENT DATE: 20240101
